FAERS Safety Report 11959150 (Version 1)
Quarter: 2016Q1

REPORT INFORMATION
  Report Type: Spontaneous
  Country: FR (occurrence: FR)
  Receive Date: 20160126
  Receipt Date: 20160126
  Transmission Date: 20160526
  Serious: Yes (Hospitalization)
  Sender: FDA-Public Use
  Company Number: PHHY2016FR008101

PATIENT
  Age: 46 Year
  Sex: Female

DRUGS (2)
  1. LAMPRENE [Suspect]
     Active Substance: CLOFAZIMINE
     Indication: PYODERMA GANGRENOSUM
     Dosage: 3 DF, QD
     Route: 048
  2. LAMPRENE [Suspect]
     Active Substance: CLOFAZIMINE
     Dosage: 1 DF, QD
     Route: 048
     Dates: end: 201505

REACTIONS (3)
  - Abdominal pain [Recovered/Resolved]
  - Duodenitis [Recovered/Resolved]
  - Product use issue [Unknown]
